FAERS Safety Report 10415343 (Version 1)
Quarter: 2014Q3

REPORT INFORMATION
  Report Type: Spontaneous
  Country: US (occurrence: US)
  Receive Date: 20140828
  Receipt Date: 20140828
  Transmission Date: 20150326
  Serious: No
  Sender: FDA-Public Use
  Company Number: US-PFIZER INC-2014235788

PATIENT
  Age: 59 Year
  Sex: Female
  Weight: 109 kg

DRUGS (2)
  1. AVINZA [Suspect]
     Active Substance: MORPHINE SULFATE
     Indication: INTERVERTEBRAL DISC PROTRUSION
     Dosage: UNK
     Dates: end: 201402
  2. AVINZA [Suspect]
     Active Substance: MORPHINE SULFATE
     Indication: HERNIA PAIN
     Dosage: UNK
     Dates: start: 2007

REACTIONS (1)
  - Accident [Unknown]

NARRATIVE: CASE EVENT DATE: 2009
